FAERS Safety Report 4692761-1 (Version None)
Quarter: 2005Q2

REPORT INFORMATION
  Report Type: 
  Country: None (occurrence: None)
  Receive Date: 20050617
  Receipt Date: 20050525
  Transmission Date: 20051028
  Serious: Yes (Other)
  Sender: FDA-Public Use
  Company Number: PHEH2005US05914

PATIENT
  Age: 60 Year
  Sex: Male

DRUGS (12)
  1. ZOMETA [Suspect]
     Dosage: UNK, QMO
  2. PREVACID [Concomitant]
     Dosage: 30 MG, QD
  3. SOMA [Concomitant]
     Indication: MUSCLE SPASMS
     Dosage: 350 MG, Q6H
  4. VITAMIN B-12 [Concomitant]
  5. VICODIN [Concomitant]
     Indication: PAIN
     Dosage: 75 MG EVERY 4-6 HOURS PRN
  6. CELEBREX [Concomitant]
     Dosage: UNK, Q12H
  7. ASPIRIN [Concomitant]
     Dosage: 81 MG, QD
  8. LIPITOR [Concomitant]
     Dosage: 40 MG EVERY OTHER DAY
  9. DILTIAZEM [Concomitant]
     Dosage: 240 MG, QD
  10. FOLIC ACID [Concomitant]
     Dosage: 1 MG, QD
     Route: 048
  11. ALBUTEROL [Concomitant]
     Dosage: 90 MEQ 2 PUFFS EVERY 4 HOURS
  12. AZMACORT [Concomitant]
     Dosage: 100 MEQ, 2 PUFFS 2-4 TIMES QD

REACTIONS (5)
  - ASEPTIC NECROSIS BONE [None]
  - BONE DISORDER [None]
  - IMPAIRED HEALING [None]
  - OSTEONECROSIS [None]
  - TOOTH EXTRACTION [None]
